FAERS Safety Report 5570246-8 (Version None)
Quarter: 2007Q4

REPORT INFORMATION
  Report Type: 
  Country: None (occurrence: None)
  Receive Date: 20071220
  Receipt Date: 20071212
  Transmission Date: 20080405
  Serious: Yes (Hospitalization)
  Sender: FDA-Public Use
  Company Number: FR-PFIZER INC-2007104634

PATIENT
  Sex: Male

DRUGS (9)
  1. SOLU-MEDROL [Suspect]
     Route: 042
     Dates: start: 20070711, end: 20070715
  2. DOCETAXEL [Suspect]
     Indication: CHEMOTHERAPY
     Route: 042
  3. CISPLATIN [Suspect]
     Indication: CHEMOTHERAPY
     Route: 042
  4. FLUOROURACIL [Suspect]
     Indication: CHEMOTHERAPY
     Route: 042
     Dates: start: 20070711, end: 20070716
  5. ALIZAPRIDE [Suspect]
     Route: 042
  6. ZOPHREN [Suspect]
     Route: 042
     Dates: start: 20070711, end: 20070715
  7. AUGMENTIN '250' [Concomitant]
  8. CIPROFLOXACIN [Concomitant]
  9. TARGOCID [Concomitant]

REACTIONS (3)
  - DIARRHOEA [None]
  - FEBRILE BONE MARROW APLASIA [None]
  - MUCOSAL INFLAMMATION [None]
